FAERS Safety Report 5001201-4 (Version None)
Quarter: 2006Q2

REPORT INFORMATION
  Report Type: 
  Country: None (occurrence: None)
  Receive Date: 20060512
  Receipt Date: 20060502
  Transmission Date: 20061013
  Serious: Yes (Hospitalization)
  Sender: FDA-Public Use
  Company Number: PL-BRISTOL-MYERS SQUIBB COMPANY-13372420

PATIENT
  Age: 51 Year
  Sex: Female

DRUGS (2)
  1. ENDOXAN [Suspect]
     Indication: ACUTE LEUKAEMIA
  2. VEPESID [Suspect]
     Indication: ACUTE LEUKAEMIA

REACTIONS (8)
  - CANDIDIASIS [None]
  - CYTOMEGALOVIRUS INFECTION [None]
  - FATIGUE [None]
  - MYCOBACTERIUM KANSASII INFECTION [None]
  - PANCYTOPENIA [None]
  - PULMONARY HYPERTENSION [None]
  - RENAL FAILURE [None]
  - THROMBOTIC MICROANGIOPATHY [None]
